FAERS Safety Report 14767563 (Version 1)
Quarter: 2018Q2

REPORT INFORMATION
  Report Type: Report from Study
  Country: US (occurrence: US)
  Receive Date: 20180417
  Receipt Date: 20180417
  Transmission Date: 20180711
  Serious: Yes (Hospitalization, Other)
  Sender: FDA-Public Use
  Company Number: US-BIOGEN-2018BI00554136

PATIENT
  Sex: Female

DRUGS (1)
  1. TECFIDERA [Suspect]
     Active Substance: DIMETHYL FUMARATE
     Indication: MULTIPLE SCLEROSIS
     Dosage: TAKE 1 CAPSULE BY MOUTH TWICE A DAY
     Route: 048

REACTIONS (7)
  - Blood potassium decreased [Unknown]
  - Diarrhoea [Unknown]
  - Dehydration [Unknown]
  - Hypertension [Unknown]
  - Vomiting [Unknown]
  - Suicidal ideation [Unknown]
  - Balance disorder [Unknown]
